FAERS Safety Report 7954147-3 (Version None)
Quarter: 2011Q4

REPORT INFORMATION
  Report Type: 
  Country: None (occurrence: None)
  Receive Date: 20111202
  Receipt Date: 20111124
  Transmission Date: 20120403
  Serious: Yes (Hospitalization)
  Sender: FDA-Public Use
  Company Number: NL-AMGEN-NLDSP2011056556

PATIENT
  Age: 68 Year
  Sex: Female

DRUGS (2)
  1. ENBREL [Suspect]
     Indication: RHEUMATOID ARTHRITIS
     Dosage: 50 MG, WEEKLY
     Dates: start: 20110501
  2. CLARITHROMYCIN [Interacting]
     Indication: PHARYNGITIS
     Dosage: 500 MG, UNK
     Route: 048
     Dates: start: 20111010

REACTIONS (2)
  - HAEMATOCHEZIA [None]
  - DRUG INTERACTION [None]
